FAERS Safety Report 5661553-9 (Version None)
Quarter: 2008Q1

REPORT INFORMATION
  Report Type: 
  Country: None (occurrence: None)
  Receive Date: 20080312
  Receipt Date: 20080303
  Transmission Date: 20080703
  Serious: Yes (Other)
  Sender: FDA-Public Use
  Company Number: US-ROCHE-550943

PATIENT
  Age: 54 Year
  Sex: Female

DRUGS (3)
  1. BONIVA [Suspect]
     Indication: OSTEOPOROSIS
     Route: 065
     Dates: start: 20070107, end: 20080202
  2. SYNTHROID [Concomitant]
  3. NITROFURANTOIN (MONOHYDRATE/MACROCRYSTALS) [Concomitant]

REACTIONS (2)
  - BONE DENSITY DECREASED [None]
  - MULTIPLE MYELOMA [None]
